FAERS Safety Report 15688991 (Version 1)
Quarter: 2018Q4

REPORT INFORMATION
  Report Type: Spontaneous
  Country: US (occurrence: US)
  Receive Date: 20181121
  Receipt Date: 20181121
  Transmission Date: 20190205
  Serious: No
  Sender: FDA-Public Use
  Company Number: None

PATIENT
  Age: 77 Year
  Sex: Female
  Weight: 63.5 kg

DRUGS (14)
  1. ALENDRONATE 70 MG [Concomitant]
     Active Substance: ALENDRONATE SODIUM
  2. TIMOLOL. [Concomitant]
     Active Substance: TIMOLOL
  3. CALCIUM [Concomitant]
     Active Substance: CALCIUM
  4. LEXAPRO [Concomitant]
     Active Substance: ESCITALOPRAM OXALATE
  5. MURO 128 [Concomitant]
     Active Substance: SODIUM CHLORIDE
  6. MULTIVITAMIN [Concomitant]
     Active Substance: VITAMINS
  7. BRIMONIDINE TARTRATE 0.15% DROP [Suspect]
     Active Substance: BRIMONIDINE TARTRATE
     Indication: INTRAOCULAR PRESSURE INCREASED
     Dosage: ?          QUANTITY:15 ML MILLILITRE(S);OTHER ROUTE:EYE DROP?
     Dates: start: 20180724, end: 20181026
  8. LATANOPROST. [Concomitant]
     Active Substance: LATANOPROST
  9. WELLBUTRIN [Concomitant]
     Active Substance: BUPROPION HYDROCHLORIDE
  10. PREDNISOLONE. [Concomitant]
     Active Substance: PREDNISOLONE
  11. DORZOLOMIDE [Concomitant]
     Active Substance: DORZOLAMIDE
  12. MOXIFLOXACIN. [Concomitant]
     Active Substance: MOXIFLOXACIN
  13. MIRALAX [Concomitant]
     Active Substance: POLYETHYLENE GLYCOL 3350
  14. SOOTHE [Concomitant]
     Active Substance: BISMUTH SUBSALICYLATE\GLYCERIN\PROPYLENE GLYCOL

REACTIONS (3)
  - Candida infection [None]
  - Dry mouth [None]
  - Pain [None]

NARRATIVE: CASE EVENT DATE: 20180724
